FAERS Safety Report 15397283 (Version 1)
Quarter: 2018Q3

REPORT INFORMATION
  Report Type: Spontaneous
  Country: JP (occurrence: JP)
  Receive Date: 20180918
  Receipt Date: 20180918
  Transmission Date: 20181010
  Serious: Yes (Hospitalization)
  Sender: FDA-Public Use
  Company Number: JP-OTSUKA-2018_030985

PATIENT
  Age: 75 Year
  Sex: Male

DRUGS (2)
  1. SAMSCA [Suspect]
     Active Substance: TOLVAPTAN
     Dosage: 3.75 MG, QD
     Route: 065
  2. SAMSCA [Suspect]
     Active Substance: TOLVAPTAN
     Indication: GENERALISED OEDEMA
     Dosage: 3.75 MG, QD
     Route: 065

REACTIONS (3)
  - Blood glucose decreased [Recovered/Resolved]
  - Product use in unapproved indication [Unknown]
  - Hypoglycaemia [Recovered/Resolved]
